FAERS Safety Report 6622788-1 (Version None)
Quarter: 2010Q1

REPORT INFORMATION
  Report Type: 
  Country: None (occurrence: None)
  Receive Date: 20100310
  Receipt Date: 20100219
  Transmission Date: 20100710
  Serious: Yes (Death, Other)
  Sender: FDA-Public Use
  Company Number: DE-SANOFI-AVENTIS-2010SA012982

PATIENT

DRUGS (16)
  1. FLUDARABINE PHOSPHATE [Suspect]
     Indication: PERIPHERAL T-CELL LYMPHOMA UNSPECIFIED
     Dosage: EVERY 21 DAYS
     Route: 048
  2. MABCAMPATH [Suspect]
     Indication: PERIPHERAL T-CELL LYMPHOMA UNSPECIFIED
     Dosage: EVERY 21 DAYS
     Route: 042
  3. MABCAMPATH [Suspect]
     Dosage: EVERY 21 DAYS
     Route: 042
  4. MABCAMPATH [Suspect]
     Dosage: EVERY 21 DAYS
     Route: 042
  5. MABCAMPATH [Suspect]
     Dosage: EVERY 21 DAYS
     Route: 042
  6. MABCAMPATH [Suspect]
     Dosage: EVERY 21 DAYS
     Route: 042
  7. CYCLOPHOSPHAMIDE [Suspect]
     Indication: PERIPHERAL T-CELL LYMPHOMA UNSPECIFIED
     Dosage: EVERY 21 DAYS
     Route: 065
  8. DOXORUBICIN [Suspect]
     Indication: PERIPHERAL T-CELL LYMPHOMA UNSPECIFIED
     Dosage: EVERY 21 DAYS
     Route: 065
  9. CLEMASTINE FUMARATE [Concomitant]
     Indication: PREMEDICATION
     Route: 042
  10. ACETAMINOPHEN [Concomitant]
     Indication: PREMEDICATION
     Route: 048
  11. PREDNISONE [Concomitant]
     Indication: PREMEDICATION
     Dosage: DAY 1 OF EACH CYCLE
     Route: 042
  12. PREDNISONE [Concomitant]
     Dosage: DAYS 2 AND 3 OF EACH CYCLE
     Route: 042
  13. SEROTONIN ANTAGONISTS [Concomitant]
     Indication: PREMEDICATION
     Route: 065
  14. SULFAMETHOXAZOLE AND TRIMETHOPRIM [Concomitant]
     Indication: ANTIBIOTIC PROPHYLAXIS
     Dosage: THREE TIMES A WEEK
     Route: 065
  15. FAMCICLOVIR [Concomitant]
     Indication: INFECTION PROPHYLAXIS
     Route: 065
  16. GRANULOCYTE COLONY STIMULATING FACTOR [Concomitant]
     Route: 065

REACTIONS (2)
  - EPSTEIN-BARR VIRUS ASSOCIATED LYMPHOPROLIFERATIVE DISORDER [None]
  - TUBERCULOSIS [None]
